FAERS Safety Report 19761412 (Version 1)
Quarter: 2021Q3

REPORT INFORMATION
  Report Type: Spontaneous
  Country: US (occurrence: US)
  Receive Date: 20210825
  Receipt Date: 20210825
  Transmission Date: 20211014
  Serious: No
  Sender: FDA-Public Use
  Company Number: None

PATIENT
  Age: 61 Year
  Sex: Female
  Weight: 81.65 kg

DRUGS (2)
  1. OLUMIANT [Suspect]
     Active Substance: BARICITINIB
     Indication: OSTEOPOROSIS
     Route: 048
     Dates: start: 202008
  2. OLUMIANT [Suspect]
     Active Substance: BARICITINIB
     Indication: RHEUMATOID ARTHRITIS

REACTIONS (1)
  - Ear infection [None]
